FAERS Safety Report 5808973-7 (Version None)
Quarter: 2008Q3

REPORT INFORMATION
  Report Type: 
  Country: None (occurrence: None)
  Receive Date: 20080710
  Receipt Date: 20080710
  Transmission Date: 20090109
  Serious: No
  Sender: FDA-Public Use
  Company Number: None

PATIENT
  Sex: Male

DRUGS (7)
  1. REVLIMID [Suspect]
     Indication: MULTIPLE MYELOMA
     Dosage: 25MG DAILY X21D/28D PO
     Route: 048
  2. DEXAMETHASONE [Concomitant]
  3. AMIODARONE HCL [Concomitant]
  4. NIACIN [Concomitant]
  5. FLOMAX [Concomitant]
  6. ASPIRIN [Concomitant]
  7. IBUPROFEN [Concomitant]

REACTIONS (9)
  - CANDIDURIA [None]
  - DEHYDRATION [None]
  - DIALYSIS [None]
  - FEBRILE NEUTROPENIA [None]
  - INFECTION [None]
  - MYALGIA [None]
  - ORAL HERPES [None]
  - PANCYTOPENIA [None]
  - RASH [None]
